FAERS Safety Report 24033549 (Version 2)
Quarter: 2024Q3

REPORT INFORMATION
  Report Type: Report from Study
  Country: US (occurrence: US)
  Receive Date: 20240701
  Receipt Date: 20240710
  Transmission Date: 20241017
  Serious: No
  Sender: ROCHE
  Company Number: US-ROCHE-3509388

PATIENT
  Age: 13 Year
  Sex: Female
  Weight: 19.87 kg

DRUGS (1)
  1. EVRYSDI [Suspect]
     Active Substance: RISDIPLAM
     Indication: Spinal muscular atrophy
     Dosage: STRENGTH: 0.75 MG/ML
     Route: 048
     Dates: start: 20231106

REACTIONS (3)
  - Myalgia [Recovered/Resolved]
  - Respiratory muscle weakness [Recovered/Resolved]
  - Muscular weakness [Recovered/Resolved]
